FAERS Safety Report 25363374 (Version 2)
Quarter: 2025Q2

REPORT INFORMATION
  Report Type: Spontaneous
  Country: US (occurrence: US)
  Receive Date: 20250527
  Receipt Date: 20250613
  Transmission Date: 20250717
  Serious: No
  Sender: Unknown Manufacturer
  Company Number: US-KINIKSA PHARMACEUTICALS LTD.-2025KPU001330

PATIENT
  Age: 72 Year
  Sex: Male

DRUGS (12)
  1. ARCALYST [Suspect]
     Active Substance: RILONACEPT
     Indication: Pericarditis
     Route: 058
     Dates: start: 20250430, end: 20250430
  2. ARCALYST [Suspect]
     Active Substance: RILONACEPT
     Dosage: 160 MILLIGRAM, QW
     Route: 058
     Dates: start: 202505
  3. METFORMIN [Concomitant]
     Active Substance: METFORMIN HYDROCHLORIDE
  4. OZEMPIC [Concomitant]
     Active Substance: SEMAGLUTIDE
  5. FARXIGA [Concomitant]
     Active Substance: DAPAGLIFLOZIN PROPANEDIOL
  6. OMEPRAZOLE [Concomitant]
     Active Substance: OMEPRAZOLE
  7. ROSUVASTATIN [Concomitant]
     Active Substance: ROSUVASTATIN
  8. LOSARTAN [Concomitant]
     Active Substance: LOSARTAN
  9. ELIQUIS [Concomitant]
     Active Substance: APIXABAN
  10. METOPROLOL [Concomitant]
     Active Substance: METOPROLOL
  11. LACTOBACILLUS ACIDOPHILUS [Concomitant]
     Active Substance: LACTOBACILLUS ACIDOPHILUS
  12. PSYLLIUM HUSK [Concomitant]
     Active Substance: PSYLLIUM HUSK

REACTIONS (7)
  - Injection site nodule [Not Recovered/Not Resolved]
  - Malabsorption from injection site [Unknown]
  - Injection site reaction [Not Recovered/Not Resolved]
  - Cataract [Unknown]
  - Injection site swelling [Unknown]
  - Injection site erythema [Unknown]
  - Injection site warmth [Unknown]

NARRATIVE: CASE EVENT DATE: 20250430
